FAERS Safety Report 6128831-0 (Version None)
Quarter: 2009Q1

REPORT INFORMATION
  Report Type: 
  Country: None (occurrence: None)
  Receive Date: 20090320
  Receipt Date: 20090309
  Transmission Date: 20090719
  Serious: No
  Sender: FDA-Public Use
  Company Number: SPI200900089

PATIENT
  Age: 64 Year
  Sex: Female
  Weight: 110.2 kg

DRUGS (8)
  1. AMITIZA [Suspect]
     Indication: CONSTIPATION
     Dosage: 8 MCG, BID, ORAL; 24 MCG, QD,ORAL; 24 MCG, QD,ORAL
     Route: 048
     Dates: start: 20081101, end: 20090227
  2. AMITIZA [Suspect]
     Indication: IRRITABLE BOWEL SYNDROME
     Dosage: 8 MCG, BID, ORAL; 24 MCG, QD,ORAL; 24 MCG, QD,ORAL
     Route: 048
     Dates: start: 20081101, end: 20090227
  3. AMITIZA [Suspect]
     Indication: CONSTIPATION
     Dosage: 8 MCG, BID, ORAL; 24 MCG, QD,ORAL; 24 MCG, QD,ORAL
     Route: 048
     Dates: start: 20090227, end: 20090301
  4. AMITIZA [Suspect]
     Indication: IRRITABLE BOWEL SYNDROME
     Dosage: 8 MCG, BID, ORAL; 24 MCG, QD,ORAL; 24 MCG, QD,ORAL
     Route: 048
     Dates: start: 20090227, end: 20090301
  5. AMITIZA [Suspect]
     Indication: CONSTIPATION
     Dosage: 8 MCG, BID, ORAL; 24 MCG, QD,ORAL; 24 MCG, QD,ORAL
     Route: 048
     Dates: start: 20090302
  6. AMITIZA [Suspect]
     Indication: IRRITABLE BOWEL SYNDROME
     Dosage: 8 MCG, BID, ORAL; 24 MCG, QD,ORAL; 24 MCG, QD,ORAL
     Route: 048
     Dates: start: 20090302
  7. MULTIVITAMINS (ASCORBIC ACID, ERGLCALCIFEROL, FOLIC ACID, NICOTINAMIDE [Concomitant]
  8. JUICE PLUS (AMYLASE, ASCORBIC ACID, CELLULASE, FOLIC ACID, LIPASE, PRO [Concomitant]

REACTIONS (9)
  - ABDOMINAL PAIN [None]
  - BOWEL MOVEMENT IRREGULARITY [None]
  - DIZZINESS [None]
  - DRUG DOSE OMISSION [None]
  - DRUG INEFFECTIVE [None]
  - DRUG TOLERANCE [None]
  - DYSPNOEA [None]
  - MALAISE [None]
  - NAUSEA [None]
